FAERS Safety Report 7916042-5 (Version None)
Quarter: 2011Q4

REPORT INFORMATION
  Report Type: 
  Country: None (occurrence: None)
  Receive Date: 20111115
  Receipt Date: 20111111
  Transmission Date: 20120403
  Serious: Yes (Hospitalization)
  Sender: FDA-Public Use
  Company Number: US-BRISTOL-MYERS SQUIBB COMPANY-16109415

PATIENT
  Age: 64 Year
  Sex: Male
  Weight: 107 kg

DRUGS (12)
  1. BACTROBAN [Concomitant]
     Dates: start: 20110906
  2. SUCRALFATE [Concomitant]
     Dates: start: 20110822
  3. OXYCODONE HCL [Concomitant]
     Dates: start: 20110915
  4. ZOFRAN [Concomitant]
     Dates: start: 20110801
  5. SPIRIVA [Concomitant]
     Dates: start: 20110719
  6. CISPLATIN [Suspect]
     Indication: NON-SMALL CELL LUNG CANCER
     Dosage: CYCLE-1,8,29,36.LAST DOSE ON 13SEP11.
     Route: 042
     Dates: start: 20110808
  7. ETOPOSIDE [Suspect]
     Indication: NON-SMALL CELL LUNG CANCER
     Dosage: CYCLE-1,5,29,33.LAST DOSE ON 09SEP11.
     Route: 042
     Dates: start: 20110808
  8. SYMBICORT [Concomitant]
     Dates: start: 20110719
  9. EMEND [Concomitant]
     Dosage: TRIFOLD
     Dates: start: 20110906
  10. TUSSIONEX [Concomitant]
     Dates: start: 20110822
  11. COMPAZINE [Concomitant]
     Dates: start: 20110801
  12. MULTI-VITAMIN [Concomitant]
     Dates: start: 20110720

REACTIONS (2)
  - OESOPHAGITIS [None]
  - DEHYDRATION [None]
